FAERS Safety Report 25866349 (Version 3)
Quarter: 2025Q4

REPORT INFORMATION
  Report Type: Report from Study
  Country: None (occurrence: GB)
  Receive Date: 20250930
  Receipt Date: 20251222
  Transmission Date: 20260118
  Serious: Yes (Other)
  Sender: SPRINGWORKS THERAPEUTIC
  Company Number: GB-SPRINGWORKS THERAPEUTICS-SW-003385

PATIENT
  Age: 18 Year
  Weight: 44.8 kg

DRUGS (7)
  1. NIROGACESTAT [Suspect]
     Active Substance: NIROGACESTAT
     Indication: Desmoid tumour
     Dosage: 130 MILLIGRAM, BID
     Route: 061
  2. NIROGACESTAT [Suspect]
     Active Substance: NIROGACESTAT
     Dosage: UNK
  3. NIROGACESTAT [Suspect]
     Active Substance: NIROGACESTAT
     Dosage: UNK
  4. NIROGACESTAT [Suspect]
     Active Substance: NIROGACESTAT
     Dosage: UNK
  5. PIZOTYLINE [Concomitant]
     Active Substance: PIZOTYLINE
     Indication: Product used for unknown indication
  6. DESOGESTREL [Concomitant]
     Active Substance: DESOGESTREL
     Indication: Product used for unknown indication
  7. SUMATRIPTAN [Concomitant]
     Active Substance: SUMATRIPTAN
     Indication: Product used for unknown indication

REACTIONS (2)
  - Hidradenitis [Recovered/Resolved]
  - Therapy interrupted [Unknown]
